FAERS Safety Report 6499908-5 (Version None)
Quarter: 2009Q4

REPORT INFORMATION
  Report Type: 
  Country: None (occurrence: None)
  Receive Date: 20091214
  Receipt Date: 20091214
  Transmission Date: 20100525
  Serious: Yes (Other)
  Sender: FDA-Public Use
  Company Number: None

PATIENT
  Age: 81 Year
  Sex: Female
  Weight: 54.4316 kg

DRUGS (1)
  1. TAMIFLU [Suspect]
     Indication: H1N1 INFLUENZA
     Dosage: 10 CAPSULS TWICE DAILY
     Dates: start: 20091126, end: 20091130

REACTIONS (2)
  - CONDITION AGGRAVATED [None]
  - DIVERTICULUM [None]
